FAERS Safety Report 8415443-9 (Version None)
Quarter: 2012Q2

REPORT INFORMATION
  Report Type: 
  Country: None (occurrence: None)
  Receive Date: 20120606
  Receipt Date: 20120601
  Transmission Date: 20120825
  Serious: Yes (Other)
  Sender: FDA-Public Use
  Company Number: PHHY2012FR047441

PATIENT
  Age: 30 Year
  Sex: Male

DRUGS (1)
  1. EXTAVIA [Suspect]
     Dosage: UNK
     Dates: start: 20110701, end: 20120101

REACTIONS (1)
  - MULTIPLE SCLEROSIS RELAPSE [None]
